FAERS Safety Report 9736000 (Version 5)
Quarter: 2017Q2

REPORT INFORMATION
  Report Type: Report from Study
  Country: DE (occurrence: DE)
  Receive Date: 20131206
  Receipt Date: 20170511
  Transmission Date: 20170830
  Serious: Yes (Other)
  Sender: FDA-Public Use
  Company Number: DE-ACTELION-A-CH2013-91988

PATIENT
  Age: 14 Year
  Sex: Female

DRUGS (5)
  1. ZAVESCA [Suspect]
     Active Substance: MIGLUSTAT
     Dosage: 100 MG, QD
     Route: 048
     Dates: start: 20120130
  2. ZAVESCA [Suspect]
     Active Substance: MIGLUSTAT
     Dosage: 200 MG, TID
     Route: 048
  3. ZAVESCA [Suspect]
     Active Substance: MIGLUSTAT
     Dosage: 200 MG, TID
     Route: 048
  4. ZAVESCA [Suspect]
     Active Substance: MIGLUSTAT
     Dosage: 100 MG, BID
     Route: 048
  5. ZAVESCA [Suspect]
     Active Substance: MIGLUSTAT
     Indication: NIEMANN-PICK DISEASE
     Dosage: 100 MG, BID
     Route: 048
     Dates: start: 201204, end: 20120618

REACTIONS (5)
  - Concomitant disease aggravated [Not Recovered/Not Resolved]
  - Thrombocytopenia [Recovered/Resolved]
  - Gastrointestinal disorder [Unknown]
  - Seizure [Not Recovered/Not Resolved]
  - Hepatomegaly [Recovered/Resolved]

NARRATIVE: CASE EVENT DATE: 20120426
